FAERS Safety Report 4767445-1 (Version None)
Quarter: 2005Q3

REPORT INFORMATION
  Report Type: 
  Country: None (occurrence: None)
  Receive Date: 20050913
  Receipt Date: 20050902
  Transmission Date: 20060218
  Serious: Yes (Death, Hospitalization, Disabling)
  Sender: FDA-Public Use
  Company Number: US-MERCK-0509USA00524

PATIENT
  Age: 71 Year
  Sex: Female

DRUGS (1)
  1. VIOXX [Suspect]
     Route: 048
     Dates: start: 20020101, end: 20020804

REACTIONS (3)
  - CEREBROVASCULAR ACCIDENT [None]
  - DEATH [None]
  - MYOCARDIAL INFARCTION [None]
